FAERS Safety Report 7019214-X (Version None)
Quarter: 2010Q3

REPORT INFORMATION
  Report Type: 
  Country: None (occurrence: None)
  Receive Date: 20100928
  Receipt Date: 20100920
  Transmission Date: 20110219
  Serious: Yes (Hospitalization)
  Sender: FDA-Public Use
  Company Number: GB-ABBOTT-10P-167-0671866-00

PATIENT
  Sex: Female

DRUGS (4)
  1. HUMIRA [Suspect]
     Indication: CROHN'S DISEASE
     Route: 058
     Dates: start: 20070525
  2. OPIATES [Suspect]
     Indication: PRODUCT USED FOR UNKNOWN INDICATION
  3. METHOTREXATE [Concomitant]
     Indication: RHEUMATOID ARTHRITIS
  4. STEROIDS [Concomitant]
     Indication: RHEUMATOID ARTHRITIS

REACTIONS (4)
  - ACCIDENTAL POISONING [None]
  - LOSS OF CONSCIOUSNESS [None]
  - SEDATION [None]
  - SPHINCTER OF ODDI DYSFUNCTION [None]
